FAERS Safety Report 7141864-0 (Version None)
Quarter: 2010Q4

REPORT INFORMATION
  Report Type: 
  Country: None (occurrence: None)
  Receive Date: 20101207
  Receipt Date: 20101129
  Transmission Date: 20110411
  Serious: Yes (Death)
  Sender: FDA-Public Use
  Company Number: CA-ROCHE-745048

PATIENT
  Sex: Female
  Weight: 30 kg

DRUGS (8)
  1. TOCILIZUMAB [Suspect]
     Route: 042
     Dates: start: 20101110, end: 20101110
  2. PREDNISONE [Concomitant]
  3. SERTRALINE [Concomitant]
  4. TYLENOL-500 [Concomitant]
  5. LORAZEPAM [Concomitant]
  6. HYDROMORPHONE HCL [Concomitant]
  7. DILAUDID [Concomitant]
  8. SYNTHROID [Concomitant]

REACTIONS (1)
  - DEATH [None]
